FAERS Safety Report 11922861 (Version 5)
Quarter: 2016Q1

REPORT INFORMATION
  Report Type: Spontaneous
  Country: PT (occurrence: PT)
  Receive Date: 20160116
  Receipt Date: 20160210
  Transmission Date: 20160526
  Serious: Yes (Death)
  Sender: FDA-Public Use
  Company Number: PT-AMGEN-PRTSP2016005058

PATIENT
  Age: 54 Year
  Sex: Male

DRUGS (9)
  1. OMEPRAZOLE. [Concomitant]
     Active Substance: OMEPRAZOLE
     Dosage: 20 MG, DAILY
     Route: 048
  2. POMALIDOMIDE [Concomitant]
     Active Substance: POMALIDOMIDE
     Dosage: UNK
  3. LENALIDOMIDE [Concomitant]
     Active Substance: LENALIDOMIDE
     Dosage: UNK
  4. ASPIRIN                            /00002701/ [Concomitant]
     Active Substance: ASPIRIN
     Dosage: 100 MG, DAILY
     Route: 048
  5. PHENTANYL [Concomitant]
     Active Substance: FENTANYL
     Dosage: 25 MUG, UNK
     Route: 062
  6. CYCLOVIR [Concomitant]
     Dosage: 400 MG, Q12H
     Route: 048
  7. DEXAMETHASONE. [Concomitant]
     Active Substance: DEXAMETHASONE
     Dosage: UNK
  8. PREGABALINE [Concomitant]
     Active Substance: PREGABALIN
     Dosage: 150 MG IN THE MORNING PLUS 225 MG AT NIGHT
     Route: 048
  9. KYPROLIS [Suspect]
     Active Substance: CARFILZOMIB
     Indication: PLASMA CELL MYELOMA
     Dosage: 20 MG/M2, 2 TIMES/WK
     Route: 042
     Dates: start: 20150928, end: 20160107

REACTIONS (1)
  - Disease progression [Fatal]
